FAERS Safety Report 7931487-5 (Version None)
Quarter: 2011Q4

REPORT INFORMATION
  Report Type: 
  Country: None (occurrence: None)
  Receive Date: 20111121
  Receipt Date: 20111121
  Transmission Date: 20120403
  Serious: Yes (Hospitalization)
  Sender: FDA-Public Use
  Company Number: None

PATIENT
  Age: 66 Year
  Sex: Male

DRUGS (7)
  1. NITROGLYCERIN [Concomitant]
     Route: 061
  2. POTASSIUM CHLORIDE [Concomitant]
     Route: 042
  3. ALTEPLASE [Suspect]
     Indication: PULMONARY EMBOLISM
     Dosage: 100 MG
     Route: 042
     Dates: start: 20111009, end: 20111009
  4. ASPIRIN [Concomitant]
     Route: 048
  5. SODIUM CHLORIDE [Concomitant]
  6. AMLODIPINE [Concomitant]
  7. NITROGLYCERIN [Concomitant]
     Route: 060

REACTIONS (5)
  - HAEMOGLOBIN DECREASED [None]
  - SYNCOPE [None]
  - DYSKINESIA [None]
  - PERITONEAL HAEMORRHAGE [None]
  - MENTAL STATUS CHANGES [None]
